FAERS Safety Report 18894875 (Version 1)
Quarter: 2021Q1

REPORT INFORMATION
  Report Type: Spontaneous
  Country: RU (occurrence: RU)
  Receive Date: 20210215
  Receipt Date: 20210215
  Transmission Date: 20210420
  Serious: Yes (Other)
  Sender: FDA-Public Use
  Company Number: RU-TEVA-2021-RU-1880109

PATIENT
  Age: 79 Year
  Sex: Female

DRUGS (1)
  1. FINLEPSIN RETARD [Suspect]
     Active Substance: CARBAMAZEPINE
     Indication: EPILEPSY

REACTIONS (6)
  - Poor quality product administered [Unknown]
  - Seizure [Recovered/Resolved]
  - Product physical issue [Unknown]
  - Suspected counterfeit product [Unknown]
  - Epilepsy [Recovered/Resolved]
  - Product substitution issue [Unknown]
